FAERS Safety Report 7953849-2 (Version None)
Quarter: 2011Q4

REPORT INFORMATION
  Report Type: 
  Country: None (occurrence: None)
  Receive Date: 20111202
  Receipt Date: 20111125
  Transmission Date: 20120403
  Serious: Yes (Life-Threatening)
  Sender: FDA-Public Use
  Company Number: FR-JNJFOC-20111011149

PATIENT
  Sex: Male
  Weight: 90 kg

DRUGS (8)
  1. DURAGESIC-100 [Suspect]
     Route: 062
     Dates: start: 20111021, end: 20111021
  2. BISOPROLOL FUMARATE [Concomitant]
     Route: 048
     Dates: start: 20111018
  3. TRAMADOL HCL [Suspect]
     Indication: PAIN
     Route: 048
     Dates: end: 20111019
  4. MORPHINE SULFATE [Suspect]
     Indication: PAIN
     Route: 048
     Dates: end: 20111021
  5. CORDARONE [Concomitant]
     Dates: start: 20111018
  6. NEURONTIN [Suspect]
     Indication: NEURALGIA
     Route: 048
     Dates: start: 20111018, end: 20111019
  7. NEURONTIN [Suspect]
     Route: 048
     Dates: start: 20111020, end: 20111021
  8. DURAGESIC-100 [Suspect]
     Indication: PAIN
     Route: 062

REACTIONS (4)
  - RESPIRATORY DEPRESSION [None]
  - COMA [None]
  - MIOSIS [None]
  - MALAISE [None]
